FAERS Safety Report 6594697-8 (Version None)
Quarter: 2010Q1

REPORT INFORMATION
  Report Type: 
  Country: None (occurrence: None)
  Receive Date: 20100222
  Receipt Date: 20100215
  Transmission Date: 20100710
  Serious: Yes (Hospitalization)
  Sender: FDA-Public Use
  Company Number: CHPA2010US03048

PATIENT
  Sex: Female

DRUGS (3)
  1. MAALOX MS TOTAL STOMACH RELIEF (NCH) [Suspect]
     Indication: ABDOMINAL DISCOMFORT
     Dosage: UNK, UNK
     Route: 048
  2. MAALOX MS TOTAL STOMACH RELIEF (NCH) [Suspect]
     Indication: FLATULENCE
  3. COUMADIN [Concomitant]
     Dosage: UNK
     Route: 048

REACTIONS (2)
  - DRUG LABEL CONFUSION [None]
  - FAECES DISCOLOURED [None]
